FAERS Safety Report 7767481-7 (Version None)
Quarter: 2011Q3

REPORT INFORMATION
  Report Type: 
  Country: None (occurrence: None)
  Receive Date: 20110922
  Receipt Date: 20110912
  Transmission Date: 20111222
  Serious: Yes (Hospitalization)
  Sender: FDA-Public Use
  Company Number: US-BAYER-2011-014072

PATIENT
  Age: 29 Year
  Sex: Female
  Weight: 88.889 kg

DRUGS (7)
  1. POLICOSANOL [Concomitant]
     Indication: BLOOD CHOLESTEROL INCREASED
     Dosage: UNK UNK, CONT
  2. DROSPIRENONE AND ETHINYL ESTRADIOL [Suspect]
     Indication: HORMONE THERAPY
  3. YASMIN [Suspect]
     Indication: HORMONE THERAPY
  4. SALMON OIL [Concomitant]
     Indication: BLOOD CHOLESTEROL INCREASED
     Dosage: UNK UNK, CONT
  5. SYNTHROID [Concomitant]
     Indication: HYPOTHYROIDISM
     Dosage: 50 ?G, CONT
     Dates: start: 20060101, end: 20090616
  6. YASMIN [Suspect]
     Indication: CONTRACEPTION
     Dosage: UNK
     Dates: start: 20041201, end: 20060101
  7. DROSPIRENONE AND ETHINYL ESTRADIOL [Suspect]
     Indication: CONTRACEPTION
     Dosage: UNK
     Route: 048
     Dates: start: 20090301, end: 20090601

REACTIONS (6)
  - PANCREATITIS [None]
  - PAIN [None]
  - EMOTIONAL DISTRESS [None]
  - CHOLECYSTITIS [None]
  - INJURY [None]
  - CHOLELITHIASIS [None]
